FAERS Safety Report 24766207 (Version 1)
Quarter: 2024Q4

REPORT INFORMATION
  Report Type: Spontaneous
  Country: US (occurrence: US)
  Receive Date: 20241223
  Receipt Date: 20241223
  Transmission Date: 20250115
  Serious: Yes (Other)
  Sender: NOVARTIS
  Company Number: US-002147023-NVSC2024US239543

PATIENT

DRUGS (1)
  1. TISAGENLECLEUCEL [Suspect]
     Active Substance: TISAGENLECLEUCEL
     Indication: Chronic lymphocytic leukaemia refractory
     Dosage: ONCE/SINGLE
     Route: 065

REACTIONS (2)
  - Cytokine release syndrome [Recovered/Resolved]
  - Off label use [Unknown]
